FAERS Safety Report 8804622 (Version 2)
Quarter: 2013Q1

REPORT INFORMATION
  Report Type: Report from Study
  Country: DE (occurrence: DE)
  Receive Date: 20120924
  Receipt Date: 20130207
  Transmission Date: 20140127
  Serious: Yes (Hospitalization)
  Sender: FDA-Public Use
  Company Number: DE-ABBOTT-12P-062-0980681-00

PATIENT
  Sex: Female

DRUGS (4)
  1. HUMIRA [Suspect]
     Indication: RHEUMATOID ARTHRITIS
     Route: 058
     Dates: start: 200906
  2. METHOTREXATE [Concomitant]
     Indication: RHEUMATOID ARTHRITIS
     Route: 048
     Dates: start: 200808, end: 20101121
  3. METHOTREXATE [Concomitant]
     Dates: start: 20101122, end: 20120614
  4. METHOTREXATE [Concomitant]
     Dates: start: 20120615

REACTIONS (2)
  - Arthritis [Recovered/Resolved]
  - Abscess [Recovered/Resolved]
